FAERS Safety Report 5467308-2 (Version None)
Quarter: 2007Q3

REPORT INFORMATION
  Report Type: 
  Country: None (occurrence: None)
  Receive Date: 20070925
  Receipt Date: 20070913
  Transmission Date: 20080115
  Serious: Yes (Life-Threatening, Hospitalization)
  Sender: FDA-Public Use
  Company Number: DE-PFIZER INC-2007077316

PATIENT
  Sex: Male
  Weight: 66 kg

DRUGS (1)
  1. SUTENT [Suspect]
     Indication: METASTATIC RENAL CELL CARCINOMA
     Route: 048
     Dates: start: 20070501, end: 20070618

REACTIONS (3)
  - CEREBRAL INFARCTION [None]
  - ENTEROCOLITIS [None]
  - INTRA-ABDOMINAL HAEMORRHAGE [None]
